FAERS Safety Report 9878023 (Version 2)
Quarter: 2014Q2

REPORT INFORMATION
  Report Type: Spontaneous
  Country: US (occurrence: US)
  Receive Date: 20140206
  Receipt Date: 20140408
  Transmission Date: 20141212
  Serious: Yes (Death)
  Sender: FDA-Public Use
  Company Number: US-FRI-1000053995

PATIENT
  Age: 64 Year
  Sex: Female
  Weight: 43 kg

DRUGS (14)
  1. TUDORZA PRESSAIR [Suspect]
     Indication: CHRONIC OBSTRUCTIVE PULMONARY DISEASE
     Dosage: 800 MCG
     Route: 055
     Dates: start: 20130214
  2. TRAZODONE [Concomitant]
     Dosage: 150 MG AT BEDTIME
     Route: 048
  3. DALIRESP [Concomitant]
     Dosage: 500 MCG
     Route: 048
  4. NEURONTIN [Concomitant]
     Dosage: 1200 MG
     Route: 048
  5. VITAMIN D2 [Concomitant]
     Dosage: 50000 IU WEEKLY
     Route: 048
  6. LASIX [Concomitant]
     Dosage: 40 MG
     Route: 048
  7. REQUIP [Concomitant]
     Dosage: 2 MG AT BEDTIME
     Route: 048
  8. VENTOLIN HFA [Concomitant]
     Indication: WHEEZING
     Dosage: 90 MCG/INHALATION 2 INHALATIONS EVERY 4-6 HOURS AS NEEDED
     Route: 055
  9. BYSTOLIC [Concomitant]
     Dosage: 10 MG
  10. CALTRATE 600+D [Concomitant]
     Dosage: 1 TABLET TWICE DAILY
  11. XANAX [Concomitant]
     Dosage: 1.5 MG
     Route: 048
  12. DUONEB [Concomitant]
     Dosage: 2.5MG-0.5 MG/3 ML INHALATION EVERY 4-6 HOURS
  13. MEGACE [Concomitant]
     Dosage: 20 MG
     Route: 048
  14. LORTAB [Concomitant]
     Indication: PAIN
     Dosage: TAKE 1 TWICE DAILY AS NEEDED
     Route: 048

REACTIONS (1)
  - Death [Fatal]
